FAERS Safety Report 16159249 (Version 1)
Quarter: 2019Q2

REPORT INFORMATION
  Report Type: Spontaneous
  Country: CN (occurrence: CN)
  Receive Date: 20190404
  Receipt Date: 20190404
  Transmission Date: 20190711
  Serious: Yes (Life-Threatening, Hospitalization, Other)
  Sender: FDA-Public Use
  Company Number: CN-BAUSCH-BL-2019-009980

PATIENT
  Age: 70 Year
  Sex: Female
  Weight: 59 kg

DRUGS (6)
  1. NIFEDIPINE. [Suspect]
     Active Substance: NIFEDIPINE
     Indication: HYPERTENSION
     Route: 048
  2. NIFEDIPINE. [Suspect]
     Active Substance: NIFEDIPINE
     Dosage: REDUCED DOSAGE
     Route: 048
     Dates: start: 201903
  3. BETALOC [Suspect]
     Active Substance: METOPROLOL TARTRATE
     Dosage: REDUCED DOSAGE
     Route: 048
     Dates: start: 201903
  4. AZOPT [Concomitant]
     Active Substance: BRINZOLAMIDE
     Indication: INTRAOCULAR PRESSURE INCREASED
     Route: 047
     Dates: start: 20190311, end: 20190316
  5. BETALOC [Suspect]
     Active Substance: METOPROLOL TARTRATE
     Indication: HYPERTENSION
     Route: 048
  6. TIMOLOL MALEATE EYE DROPS [Suspect]
     Active Substance: TIMOLOL MALEATE
     Indication: INTRAOCULAR PRESSURE INCREASED
     Route: 047
     Dates: start: 20190311, end: 20190316

REACTIONS (4)
  - Dyspnoea [Recovering/Resolving]
  - Angle closure glaucoma [Unknown]
  - Coma [Recovering/Resolving]
  - Chest discomfort [Recovering/Resolving]

NARRATIVE: CASE EVENT DATE: 20190315
